FAERS Safety Report 4586729-3 (Version None)
Quarter: 2005Q1

REPORT INFORMATION
  Report Type: 
  Country: None (occurrence: None)
  Receive Date: 20050214
  Receipt Date: 20050114
  Transmission Date: 20050727
  Serious: Yes (Death)
  Sender: FDA-Public Use
  Company Number: 2005014474

PATIENT
  Age: 57 Year
  Sex: Female
  Weight: 78 kg

DRUGS (1)
  1. CELECOXIB (CELECOXIB) [Suspect]
     Indication: BACK PAIN
     Dosage: 200 MG (200 MG), ORAL
     Route: 048
     Dates: start: 20041201, end: 20041201

REACTIONS (2)
  - ISCHAEMIA [None]
  - MYOCARDIAL INFARCTION [None]
